FAERS Safety Report 5339711-2 (Version None)
Quarter: 2007Q2

REPORT INFORMATION
  Report Type: 
  Country: None (occurrence: None)
  Receive Date: 20070404
  Receipt Date: 20060921
  Transmission Date: 20071010
  Serious: Yes (Other)
  Sender: FDA-Public Use
  Company Number: 2006114630

PATIENT

DRUGS (1)
  1. GEODON [Suspect]
     Dates: start: 20060101

REACTIONS (3)
  - HYPERHIDROSIS [None]
  - JOINT STIFFNESS [None]
  - MUSCLE RIGIDITY [None]
